FAERS Safety Report 5713428-4 (Version None)
Quarter: 2008Q2

REPORT INFORMATION
  Report Type: 
  Country: None (occurrence: None)
  Receive Date: 20080422
  Receipt Date: 20080325
  Transmission Date: 20081010
  Serious: No
  Sender: FDA-Public Use
  Company Number: US-BOEHRINGER INGELHEIM GMBH, GERMANY-2008-BP-04733BP

PATIENT
  Sex: Female

DRUGS (7)
  1. SPIRIVA [Suspect]
     Indication: CHRONIC OBSTRUCTIVE PULMONARY DISEASE
     Dates: start: 20070801
  2. SPIRIVA [Suspect]
     Indication: BRONCHITIS CHRONIC
  3. LANTUS [Concomitant]
  4. LORTEL [Concomitant]
  5. ZOCOR [Concomitant]
  6. DICLOFENAC SODIUM [Concomitant]
  7. PRILOSEC [Concomitant]

REACTIONS (1)
  - DRUG INEFFECTIVE [None]
